FAERS Safety Report 7742229-0 (Version None)
Quarter: 2011Q3

REPORT INFORMATION
  Report Type: 
  Country: None (occurrence: None)
  Receive Date: 20110829
  Receipt Date: 20110818
  Transmission Date: 20111222
  Serious: Yes (Other)
  Sender: FDA-Public Use
  Company Number: 2011SP039191

PATIENT
  Age: 26 Year
  Sex: Female
  Weight: 68.4932 kg

DRUGS (1)
  1. NUVARING [Suspect]
     Indication: CONTRACEPTION
     Dosage: VAG
     Route: 067
     Dates: start: 20110401

REACTIONS (6)
  - PALPITATIONS [None]
  - DIZZINESS [None]
  - NERVOUSNESS [None]
  - SYNCOPE [None]
  - NAUSEA [None]
  - CHEST PAIN [None]
